FAERS Safety Report 13521491 (Version 1)
Quarter: 2017Q2

REPORT INFORMATION
  Report Type: Spontaneous
  Country: US (occurrence: US)
  Receive Date: 20170508
  Receipt Date: 20170508
  Transmission Date: 20170830
  Serious: No
  Sender: FDA-Public Use
  Company Number: US-009507513-1704USA011123

PATIENT
  Age: 24 Year
  Sex: Female
  Weight: 76.19 kg

DRUGS (1)
  1. NEXPLANON [Suspect]
     Active Substance: ETONOGESTREL
     Indication: CONTRACEPTION
     Dosage: 3 YEARS
     Route: 059
     Dates: start: 20140414

REACTIONS (6)
  - Dizziness [Unknown]
  - Incorrect drug administration duration [Unknown]
  - Weight increased [Unknown]
  - Visual impairment [Unknown]
  - Nausea [Unknown]
  - Hypopnoea [Unknown]

NARRATIVE: CASE EVENT DATE: 2016
